FAERS Safety Report 21904694 (Version 1)
Quarter: 2023Q1

REPORT INFORMATION
  Report Type: Spontaneous
  Country: US (occurrence: None)
  Receive Date: 20230120
  Receipt Date: 20230120
  Transmission Date: 20230418
  Serious: Yes (Hospitalization)
  Sender: FDA-Public Use
  Company Number: None

PATIENT
  Age: 46 Year
  Sex: Female
  Weight: 90.8 kg

DRUGS (2)
  1. OPDIVO [Suspect]
     Active Substance: NIVOLUMAB
     Indication: Glioblastoma
     Dosage: FREQUENCY : MONTHLY;?OTHER ROUTE : OTHER;?
     Route: 050
     Dates: start: 20161005, end: 20170411
  2. NIVOLUMAB [Suspect]
     Active Substance: NIVOLUMAB
     Indication: Glioblastoma multiforme

REACTIONS (9)
  - Headache [None]
  - Nausea [None]
  - Vomiting [None]
  - Vasogenic cerebral oedema [None]
  - Cerebral mass effect [None]
  - Wound [None]
  - Unresponsive to stimuli [None]
  - Blood pressure increased [None]
  - Pupil fixed [None]

NARRATIVE: CASE EVENT DATE: 20170418
